FAERS Safety Report 19094954 (Version 1)
Quarter: 2021Q2

REPORT INFORMATION
  Report Type: Spontaneous
  Country: CN (occurrence: CN)
  Receive Date: 20210406
  Receipt Date: 20210406
  Transmission Date: 20210717
  Serious: Yes (Hospitalization, Other)
  Sender: FDA-Public Use
  Company Number: CN-JNJFOC-20210346265

PATIENT
  Age: 13 Year
  Sex: Male

DRUGS (1)
  1. PARACETAMOL [Suspect]
     Active Substance: ACETAMINOPHEN
     Indication: UPPER RESPIRATORY TRACT INFECTION
     Route: 065

REACTIONS (4)
  - Toxic epidermal necrolysis [Recovering/Resolving]
  - Pancreatic injury [Recovering/Resolving]
  - Liver injury [Recovering/Resolving]
  - Bacterial infection [Recovering/Resolving]
